FAERS Safety Report 7988647-7 (Version None)
Quarter: 2011Q4

REPORT INFORMATION
  Report Type: 
  Country: None (occurrence: None)
  Receive Date: 20111218
  Receipt Date: 20111207
  Transmission Date: 20120403
  Serious: Yes (Other)
  Sender: FDA-Public Use
  Company Number: US-ASTRAZENECA-2011SE48065

PATIENT
  Age: 61 Year
  Sex: Male
  Weight: 85.3 kg

DRUGS (11)
  1. MICARDIS HCT [Concomitant]
     Indication: BLOOD PRESSURE ABNORMAL
     Dosage: 80-12.5 MG DAILY
     Route: 048
  2. OXYCODONE HCL [Concomitant]
     Indication: PAIN
     Route: 048
  3. LYRICA [Concomitant]
     Dosage: 100 MG TWO TO THREE AT BEDTIME
  4. PROTONIX [Concomitant]
     Indication: GASTROOESOPHAGEAL REFLUX DISEASE
     Route: 048
  5. OXYCODONE HCL [Concomitant]
     Dosage: ONE OR TWO TAB EVERY FOUR HOURS AS NEEDED FOR BREAKTHROUGH PAIN
     Route: 048
  6. OXYCODONE HCL [Concomitant]
     Route: 048
  7. ALLOPURINOL [Concomitant]
     Indication: GOUT
     Route: 048
  8. CRESTOR [Suspect]
     Indication: BLOOD CHOLESTEROL ABNORMAL
     Route: 048
     Dates: start: 20100617
  9. LYRICA [Concomitant]
     Indication: NEURALGIA
  10. ASPIRIN [Concomitant]
     Indication: CARDIAC DISORDER
     Route: 048
  11. COREG CR [Concomitant]
     Indication: BLOOD PRESSURE ABNORMAL
     Route: 048

REACTIONS (18)
  - BACK PAIN [None]
  - GASTRIC DISORDER [None]
  - DEPRESSION [None]
  - HIATUS HERNIA [None]
  - ANXIETY [None]
  - PARAESTHESIA [None]
  - BURNING SENSATION [None]
  - PAIN [None]
  - NAUSEA [None]
  - MUSCLE SPASMS [None]
  - ULCER HAEMORRHAGE [None]
  - HYPOAESTHESIA [None]
  - SENSATION OF HEAVINESS [None]
  - SLEEP DISORDER [None]
  - ARTHRALGIA [None]
  - MUSCULOSKELETAL PAIN [None]
  - CONSTIPATION [None]
  - SLEEP APNOEA SYNDROME [None]
